FAERS Safety Report 5588016-3 (Version None)
Quarter: 2008Q1

REPORT INFORMATION
  Report Type: 
  Country: None (occurrence: None)
  Receive Date: 20080111
  Receipt Date: 20071228
  Transmission Date: 20080703
  Serious: Yes (Other)
  Sender: FDA-Public Use
  Company Number: US-PFIZER INC-2008000287

PATIENT
  Sex: Female

DRUGS (2)
  1. XANAX [Suspect]
     Indication: INSOMNIA
  2. ALL OTHER THERAPEUTIC PRODUCTS [Concomitant]

REACTIONS (3)
  - COELIAC DISEASE [None]
  - MALAISE [None]
  - WEIGHT DECREASED [None]
